FAERS Safety Report 16167867 (Version 1)
Quarter: 2019Q2

REPORT INFORMATION
  Report Type: Other
  Country: FR (occurrence: FR)
  Receive Date: 20190408
  Receipt Date: 20190408
  Transmission Date: 20190711
  Serious: Yes (Hospitalization)
  Sender: FDA-Public Use
  Company Number: FR-ASTELLAS-2019US014230

PATIENT
  Age: 68 Year
  Sex: Male

DRUGS (2)
  1. NOXAFIL [Interacting]
     Active Substance: POSACONAZOLE
     Indication: SINUSITIS ASPERGILLUS
     Route: 048
     Dates: start: 20181213, end: 20190117
  2. ADVAGRAF [Suspect]
     Active Substance: TACROLIMUS
     Indication: LIVER TRANSPLANT
     Dosage: 0.5 MG, ONCE DAILY
     Route: 048
     Dates: start: 20050523, end: 20190112

REACTIONS (2)
  - Immunosuppressant drug level increased [Recovered/Resolved]
  - Drug interaction [Recovered/Resolved]

NARRATIVE: CASE EVENT DATE: 20190112
